FAERS Safety Report 17815119 (Version 4)
Quarter: 2024Q1

REPORT INFORMATION
  Report Type: Spontaneous
  Country: JP (occurrence: JP)
  Receive Date: 20200522
  Receipt Date: 20240319
  Transmission Date: 20240409
  Serious: Yes (Death, Other)
  Sender: FDA-Public Use
  Company Number: JP-JAZZ-2020-JP-006726

PATIENT
  Age: 44 Year
  Sex: Male
  Weight: 87.6 kg

DRUGS (4)
  1. DEFITELIO [Suspect]
     Active Substance: DEFIBROTIDE SODIUM
     Indication: Venoocclusive liver disease
     Dosage: 2400 MILLIGRAM/24 HOURS
     Route: 042
     Dates: start: 20200306, end: 2020
  2. DEFITELIO [Suspect]
     Active Substance: DEFIBROTIDE SODIUM
     Dosage: 12.5 MILLIGRAM/KILOGRAM, QD
     Route: 042
     Dates: start: 20200306, end: 20200306
  3. DEFITELIO [Suspect]
     Active Substance: DEFIBROTIDE SODIUM
     Dosage: 25 MILLIGRAM/KILOGRAM, QD
     Route: 042
     Dates: start: 20200307, end: 20200507
  4. NOREPINEPHRINE [Concomitant]
     Active Substance: NOREPINEPHRINE\NOREPINEPHRINE BITARTRATE
     Indication: Product used for unknown indication
     Dosage: UNK

REACTIONS (1)
  - Septic shock [Fatal]

NARRATIVE: CASE EVENT DATE: 20200417
